FAERS Safety Report 13611955 (Version 1)
Quarter: 2017Q2

REPORT INFORMATION
  Report Type: Spontaneous
  Country: HR (occurrence: HR)
  Receive Date: 20170605
  Receipt Date: 20170605
  Transmission Date: 20170830
  Serious: Yes (Hospitalization, Other)
  Sender: FDA-Public Use
  Company Number: HR-MYLANLABS-2017M1032302

PATIENT

DRUGS (8)
  1. LEPONEX [Suspect]
     Active Substance: CLOZAPINE
     Dosage: 550 MG, UNK
     Route: 048
     Dates: start: 20170103
  2. LEPONEX 100 MG [Suspect]
     Active Substance: CLOZAPINE
     Dosage: 1000 MG, UNK
     Route: 048
     Dates: start: 20170103
  3. SEROQUEL [Suspect]
     Active Substance: QUETIAPINE FUMARATE
     Dosage: 1500 MG, UNK
     Route: 048
     Dates: start: 20170103
  4. BRUFEN [Suspect]
     Active Substance: IBUPROFEN
     Dosage: 800 MG, UNK
     Route: 048
     Dates: start: 20170103
  5. CERSON (NITRAZEPAM) [Suspect]
     Active Substance: NITRAZEPAM
     Dosage: 100 MG, UNK
     Route: 048
     Dates: start: 20170103
  6. B-COMPLEX                          /00003501/ [Suspect]
     Active Substance: CYANOCOBALAMIN\DEXPANTHENOL\NIACINAMIDE\PYRIDOXINE HYDROCHLORIDE\RIBOFLAVIN 5^-PHOSPHATE SODIUM\THIAMINE HYDROCHLORIDE\VITAMIN B COMPLEX
     Dosage: 30 DF, UNK
     Route: 048
     Dates: start: 20170103
  7. AKINETON [Suspect]
     Active Substance: BIPERIDEN HYDROCHLORIDE
     Dosage: 60 MG, UNK
     Route: 048
     Dates: start: 20170103
  8. NORMABEL [Suspect]
     Active Substance: DIAZEPAM
     Dosage: 300 MG, UNK
     Route: 048
     Dates: start: 20170103

REACTIONS (3)
  - Suicide attempt [Unknown]
  - Intentional overdose [Unknown]
  - Somnolence [Unknown]

NARRATIVE: CASE EVENT DATE: 20170103
